FAERS Safety Report 6065292-4 (Version None)
Quarter: 2009Q1

REPORT INFORMATION
  Report Type: 
  Country: None (occurrence: None)
  Receive Date: 20090204
  Receipt Date: 20090123
  Transmission Date: 20090719
  Serious: Yes (Death)
  Sender: FDA-Public Use
  Company Number: FR-SANOFI-SYNTHELABO-A02200803737

PATIENT
  Sex: Male

DRUGS (9)
  1. SOLU-MEDROL [Concomitant]
     Route: 042
     Dates: start: 20080201, end: 20080201
  2. ZOPHREN [Concomitant]
     Route: 065
     Dates: start: 20080201, end: 20080201
  3. PRIMPERAN TAB [Concomitant]
     Route: 065
     Dates: start: 20080201, end: 20080201
  4. GRANOCYTE [Suspect]
     Indication: DRUG USE FOR UNKNOWN INDICATION
     Route: 058
     Dates: start: 20080210, end: 20080212
  5. EFFEXOR [Suspect]
     Indication: DRUG USE FOR UNKNOWN INDICATION
     Route: 048
     Dates: end: 20080221
  6. CADUET [Suspect]
     Indication: DRUG USE FOR UNKNOWN INDICATION
     Route: 048
     Dates: end: 20080219
  7. XELODA [Suspect]
     Indication: METASTATIC GASTRIC CANCER
     Route: 048
     Dates: start: 20080208, end: 20080208
  8. EPIRUBICIN HCL [Suspect]
     Indication: METASTATIC GASTRIC CANCER
     Route: 042
     Dates: start: 20080208, end: 20080208
  9. ELOXATIN [Suspect]
     Indication: METASTATIC GASTRIC CANCER
     Route: 042
     Dates: start: 20080208, end: 20080208

REACTIONS (1)
  - RENAL FAILURE ACUTE [None]
